FAERS Safety Report 18179938 (Version 2)
Quarter: 2020Q4

REPORT INFORMATION
  Report Type: Spontaneous
  Country: US (occurrence: US)
  Receive Date: 20200821
  Receipt Date: 20201021
  Transmission Date: 20210113
  Serious: Yes (Hospitalization, Congenital Anomaly, Other)
  Sender: FDA-Public Use
  Company Number: US-SCIEGEN-2020SCILIT00229

PATIENT
  Sex: Male

DRUGS (5)
  1. OLMESARTAN MEDOXOMIL TABLETS 5 MG, 20 MG, 40 MG [Suspect]
     Active Substance: OLMESARTAN MEDOXOMIL
     Indication: FOETAL EXPOSURE DURING PREGNANCY
     Route: 064
  2. PROGRAF [Interacting]
     Active Substance: TACROLIMUS
     Indication: PRODUCT USED FOR UNKNOWN INDICATION
     Route: 065
  3. MYCOPHENOLATE [Interacting]
     Active Substance: MYCOPHENOLIC ACID
     Indication: PRODUCT USED FOR UNKNOWN INDICATION
     Route: 065
  4. ANTITHYMOCYTE GLOBULIN [Interacting]
     Active Substance: THYMOCYTE IMMUNE GLOBULIN NOS
     Route: 065
  5. SOLU-MEDROL [Interacting]
     Active Substance: METHYLPREDNISOLONE SODIUM SUCCINATE
     Indication: PRODUCT USED FOR UNKNOWN INDICATION
     Route: 065

REACTIONS (2)
  - Premature baby [None]
  - Chronic kidney disease [Unknown]
